FAERS Safety Report 17723403 (Version 1)
Quarter: 2020Q2

REPORT INFORMATION
  Report Type: Spontaneous
  Country: DE (occurrence: DE)
  Receive Date: 20200429
  Receipt Date: 20200429
  Transmission Date: 20200714
  Serious: Yes (Other)
  Sender: FDA-Public Use
  Company Number: NVSC2020DE113710

PATIENT
  Age: 1 Day
  Sex: Male
  Weight: 2.42 kg

DRUGS (7)
  1. NEPRESOL [Concomitant]
     Indication: FOETAL EXPOSURE DURING PREGNANCY
     Dosage: MATERNAL DOSE (100 MG, QD /50 - 100 MG DAILY)
     Route: 064
  2. FEMIBION [Concomitant]
     Indication: FOETAL EXPOSURE DURING PREGNANCY
     Route: 064
     Dates: start: 20180926, end: 20190518
  3. SIMVASTATIN. [Concomitant]
     Active Substance: SIMVASTATIN
     Indication: FOETAL EXPOSURE DURING PREGNANCY
     Dosage: MATERNAL DOSE (20 MG, QD)
     Route: 064
  4. PRAVASTATIN. [Concomitant]
     Active Substance: PRAVASTATIN
     Indication: FOETAL EXPOSURE DURING PREGNANCY
     Dosage: MATERNAL DOSE (40 MG, QD)
     Route: 064
  5. BISOPROLOL [Suspect]
     Active Substance: BISOPROLOL
     Indication: FOETAL EXPOSURE DURING PREGNANCY
     Dosage: MATERNAL DOSE (5 MG, QD /2.5 - 5.0 MG DAILY)
     Route: 064
     Dates: start: 20180825, end: 20190518
  6. ASPIRIN. [Concomitant]
     Active Substance: ASPIRIN
     Indication: FOETAL EXPOSURE DURING PREGNANCY
     Dosage: MATERNAL DOSE (100 MG, QD)
     Route: 064
  7. VAXIGRIP [Concomitant]
     Active Substance: INFLUENZA VIRUS VACCINE
     Indication: FOETAL EXPOSURE DURING PREGNANCY
     Dosage: UNK
     Route: 064

REACTIONS (1)
  - Small for dates baby [Recovered/Resolved]

NARRATIVE: CASE EVENT DATE: 20190518
